FAERS Safety Report 9840453 (Version 1)
Quarter: 2013Q4

REPORT INFORMATION
  Report Type: Spontaneous
  Country: FR (occurrence: None)
  Receive Date: 20131211
  Receipt Date: 20131211
  Transmission Date: 20140711
  Serious: No
  Sender: FDA-Public Use
  Company Number: SPV1-2010-01810

PATIENT
  Age: 9 Year
  Sex: Male

DRUGS (1)
  1. ELAPRASE (IDURSULFASE) CONCENTRATE FOR SOLUTION FOR INFUSION [Suspect]
     Indication: MUCOPOLYSACCHARIDOSIS II

REACTIONS (1)
  - Convulsion [None]
